FAERS Safety Report 8391846-6 (Version None)
Quarter: 2012Q2

REPORT INFORMATION
  Report Type: 
  Country: None (occurrence: None)
  Receive Date: 20120529
  Receipt Date: 20120528
  Transmission Date: 20120825
  Serious: Yes (Death, Hospitalization)
  Sender: FDA-Public Use
  Company Number: US-GLAXOSMITHKLINE-A0935735A

PATIENT
  Sex: Male

DRUGS (1)
  1. AVANDIA [Suspect]
     Indication: DIABETES MELLITUS
     Route: 048

REACTIONS (10)
  - CHEST DISCOMFORT [None]
  - OEDEMA PERIPHERAL [None]
  - DEATH [None]
  - CARDIAC DISORDER [None]
  - LUNG DISORDER [None]
  - DYSPNOEA [None]
  - FATIGUE [None]
  - VISUAL IMPAIRMENT [None]
  - WEIGHT INCREASED [None]
  - CELLULITIS [None]
